FAERS Safety Report 11475850 (Version 3)
Quarter: 2016Q1

REPORT INFORMATION
  Report Type: Report from Study
  Country: US (occurrence: US)
  Receive Date: 20150909
  Receipt Date: 20160108
  Transmission Date: 20160525
  Serious: Yes (Other)
  Sender: FDA-Public Use
  Company Number: US-AMGEN-USASL2015083017

PATIENT
  Age: 52 Year
  Sex: Male

DRUGS (1)
  1. BLINCYTO [Suspect]
     Active Substance: BLINATUMOMAB
     Indication: ACUTE LYMPHOCYTIC LEUKAEMIA (IN REMISSION)
     Dosage: UNK
     Route: 065
     Dates: start: 201508

REACTIONS (11)
  - Leukopenia [Unknown]
  - Cognitive disorder [Recovered/Resolved]
  - Graft versus host disease in skin [Unknown]
  - Headache [Recovering/Resolving]
  - Anaemia [Unknown]
  - Renal failure [Unknown]
  - Memory impairment [Not Recovered/Not Resolved]
  - Toxicity to various agents [Recovered/Resolved]
  - Nausea [Unknown]
  - Emotional disorder [Unknown]
  - Decreased appetite [Unknown]
